FAERS Safety Report 14593874 (Version 1)
Quarter: 2018Q1

REPORT INFORMATION
  Report Type: Spontaneous
  Country: IT (occurrence: IT)
  Receive Date: 20180302
  Receipt Date: 20180302
  Transmission Date: 20180509
  Serious: Yes (Life-Threatening, Other)
  Sender: FDA-Public Use
  Company Number: IT-PFIZER INC-2018088518

PATIENT
  Age: 4 Year
  Sex: Male

DRUGS (13)
  1. DEPAKINE /00228501/ [Concomitant]
     Active Substance: VALPROIC ACID
     Dosage: UNK
  2. ANTRA /00661201/ [Concomitant]
     Active Substance: OMEPRAZOLE
     Dosage: UNK
  3. GARDENALE /00023201/ [Concomitant]
     Active Substance: PHENOBARBITAL
     Dosage: UNK
  4. ETOPOSIDE TEVA [Suspect]
     Active Substance: ETOPOSIDE
     Dosage: 150 MG, CYCLIC
     Route: 042
     Dates: start: 20170505, end: 20170512
  5. KEPPRA [Concomitant]
     Active Substance: LEVETIRACETAM
     Dosage: UNK
  6. KETAMINE [Concomitant]
     Active Substance: KETAMINE
     Dosage: UNK
  7. PARACETAMOL [Concomitant]
     Active Substance: ACETAMINOPHEN
     Dosage: UNK
  8. METHOTREXATE SODIUM. [Suspect]
     Active Substance: METHOTREXATE SODIUM
     Dosage: 12 MG, UNK
     Dates: start: 20170505, end: 20170512
  9. SOLU-MEDROL [Suspect]
     Active Substance: METHYLPREDNISOLONE SODIUM SUCCINATE
     Dosage: 15 MG/KG, QD (FOR A MONTH)
     Route: 042
     Dates: start: 20170330
  10. ONKOTRONE [Suspect]
     Active Substance: MITOXANTRONE HYDROCHLORIDE
     Dosage: 10 MG, CYCLIC
     Route: 042
     Dates: start: 20170421, end: 20170428
  11. SANDIMMUN [Suspect]
     Active Substance: CYCLOSPORINE
     Dosage: 140 MG, 1X/DAY
     Route: 042
     Dates: start: 20170414, end: 20170420
  12. MIDAZOLAM [Concomitant]
     Active Substance: MIDAZOLAM HYDROCHLORIDE
     Dosage: UNK
  13. DELTACORTENE [Suspect]
     Active Substance: PREDNISONE
     Dosage: 10 MG, 1X/DAY
     Route: 048
     Dates: start: 20170316, end: 20170330

REACTIONS (6)
  - Septic shock [Not Recovered/Not Resolved]
  - Neutrophil count decreased [Unknown]
  - Platelet count decreased [Unknown]
  - Hypotension [Unknown]
  - Leukopenia [Not Recovered/Not Resolved]
  - Bradycardia [Unknown]

NARRATIVE: CASE EVENT DATE: 20170502
